FAERS Safety Report 13295787 (Version 1)
Quarter: 2017Q1

REPORT INFORMATION
  Report Type: Report from Study
  Country: None (occurrence: US)
  Receive Date: 20170303
  Receipt Date: 20170303
  Transmission Date: 20170428
  Serious: Yes (Hospitalization)
  Sender: FDA-Public Use
  Company Number: US-ABBVIE-17K-163-1841209-00

PATIENT
  Age: 51 Year
  Sex: Male

DRUGS (5)
  1. HUMIRA [Suspect]
     Active Substance: ADALIMUMAB
     Indication: RHEUMATOID ARTHRITIS
     Route: 058
     Dates: start: 2011, end: 201612
  2. MELOXICAM. [Concomitant]
     Active Substance: MELOXICAM
     Indication: RHEUMATOID ARTHRITIS
  3. TRAMADOL. [Concomitant]
     Active Substance: TRAMADOL
     Indication: RHEUMATOID ARTHRITIS
  4. LISINOPRIL. [Concomitant]
     Active Substance: LISINOPRIL
     Indication: HYPERTENSION
  5. ARAVA [Concomitant]
     Active Substance: LEFLUNOMIDE
     Indication: RHEUMATOID ARTHRITIS

REACTIONS (7)
  - Staphylococcal infection [Recovered/Resolved]
  - Malaise [Recovered/Resolved]
  - Sepsis [Recovered/Resolved]
  - Fatigue [Recovering/Resolving]
  - Loss of consciousness [Recovered/Resolved]
  - Diarrhoea [Recovered/Resolved]
  - Viral infection [Recovered/Resolved]

NARRATIVE: CASE EVENT DATE: 201612
